FAERS Safety Report 18157110 (Version 2)
Quarter: 2020Q4

REPORT INFORMATION
  Report Type: Spontaneous
  Country: US (occurrence: US)
  Receive Date: 20200817
  Receipt Date: 20201221
  Transmission Date: 20210113
  Serious: Yes (Other)
  Sender: FDA-Public Use
  Company Number: US-SA-2020SA211330

PATIENT

DRUGS (1)
  1. ZANTAC [Suspect]
     Active Substance: RANITIDINE HYDROCHLORIDE
     Indication: DYSPEPSIA
     Dosage: 75 MG, QD
     Dates: start: 199905, end: 201901

REACTIONS (3)
  - Colorectal cancer stage I [Unknown]
  - Uterine cancer [Unknown]
  - Colon cancer [Unknown]

NARRATIVE: CASE EVENT DATE: 20040101
